FAERS Safety Report 17544268 (Version 2)
Quarter: 2020Q1

REPORT INFORMATION
  Report Type: Spontaneous
  Country: US (occurrence: US)
  Receive Date: 20200316
  Receipt Date: 20200326
  Transmission Date: 20200409
  Serious: No
  Sender: FDA-Public Use
  Company Number: US-JNJFOC-20200314888

PATIENT

DRUGS (1)
  1. TREMFYA [Suspect]
     Active Substance: GUSELKUMAB
     Indication: RHEUMATOID ARTHRITIS
     Route: 065

REACTIONS (5)
  - Product use in unapproved indication [Unknown]
  - Off label use [Unknown]
  - Needle issue [Unknown]
  - Product dose omission [Unknown]
  - Accidental exposure to product [Unknown]
